FAERS Safety Report 17096906 (Version 1)
Quarter: 2019Q4

REPORT INFORMATION
  Report Type: Spontaneous
  Country: US (occurrence: US)
  Receive Date: 20191202
  Receipt Date: 20191202
  Transmission Date: 20200122
  Serious: Yes (Other)
  Sender: FDA-Public Use
  Company Number: US-ALLERGAN-1919954US

PATIENT
  Age: 6 Decade
  Sex: Female

DRUGS (1)
  1. TEFLARO [Suspect]
     Active Substance: CEFTAROLINE FOSAMIL
     Indication: WOUND INFECTION STAPHYLOCOCCAL
     Dosage: 600 MG, Q12H
     Route: 065

REACTIONS (2)
  - Clostridium difficile infection [Unknown]
  - Off label use [Unknown]
